FAERS Safety Report 24595676 (Version 2)
Quarter: 2024Q4

REPORT INFORMATION
  Report Type: Report from Study
  Country: US (occurrence: US)
  Receive Date: 20241109
  Receipt Date: 20241115
  Transmission Date: 20250114
  Serious: Yes (Other)
  Sender: ABBVIE
  Company Number: US-ABBVIE-5988728

PATIENT
  Age: 42 Year
  Sex: Female

DRUGS (1)
  1. SKYRIZI [Suspect]
     Active Substance: RISANKIZUMAB-RZAA
     Indication: Crohn^s disease
     Dosage: LAST ADMINISTRATION DATE : 2024
     Route: 042
     Dates: start: 20240717

REACTIONS (2)
  - Scar [Unknown]
  - Intestinal operation [Unknown]

NARRATIVE: CASE EVENT DATE: 20240610
